FAERS Safety Report 8981481 (Version 3)
Quarter: 2013Q2

REPORT INFORMATION
  Report Type: Spontaneous
  Country: US (occurrence: US)
  Receive Date: 20121221
  Receipt Date: 20130507
  Transmission Date: 20140414
  Serious: Yes (Other)
  Sender: FDA-Public Use
  Company Number: US-BAYER-2012-127732

PATIENT
  Age: 25 Year
  Sex: Female
  Weight: 77.1 kg

DRUGS (9)
  1. YASMIN [Suspect]
     Dosage: UNK
     Dates: start: 20060830, end: 20070124
  2. YAZ [Suspect]
     Indication: CONTRACEPTION
  3. YAZ [Suspect]
     Indication: ACNE
  4. TYLENOL [Concomitant]
     Indication: PAIN
  5. ASPIRIN [Concomitant]
     Indication: PAIN
  6. ALEVE [Concomitant]
     Indication: PAIN
  7. OTHER ANALGESICS AND ANTIPYRETICS [Concomitant]
     Indication: PAIN
  8. MINOCYCLINE [Concomitant]
     Dosage: 100 MG, UNK
  9. DIFFERIN [Concomitant]
     Dosage: 0.1 %, UNK

REACTIONS (2)
  - Intracranial venous sinus thrombosis [Recovering/Resolving]
  - Headache [Recovering/Resolving]
